FAERS Safety Report 9843109 (Version 1)
Quarter: 2014Q1

REPORT INFORMATION
  Report Type: Spontaneous
  Country: US (occurrence: US)
  Receive Date: 20140124
  Receipt Date: 20140124
  Transmission Date: 20141002
  Serious: Yes (Death)
  Sender: FDA-Public Use
  Company Number: US-ALLERGAN-1401274US

PATIENT
  Sex: Male

DRUGS (1)
  1. BOTOX [Suspect]
     Indication: NEUROGENIC BLADDER
     Dosage: UNK, SINGLE
     Dates: start: 20131205, end: 20131205

REACTIONS (1)
  - Death [Fatal]
